FAERS Safety Report 5994047-1 (Version None)
Quarter: 2008Q4

REPORT INFORMATION
  Report Type: 
  Country: None (occurrence: None)
  Receive Date: 20081212
  Receipt Date: 20080903
  Transmission Date: 20090506
  Serious: No
  Sender: FDA-Public Use
  Company Number: US-ABBOTT-08P-163-0472915-00

PATIENT
  Sex: Female
  Weight: 81.72 kg

DRUGS (6)
  1. HUMIRA [Suspect]
     Indication: PSORIASIS
     Route: 058
     Dates: start: 20080709
  2. NORVASCA [Concomitant]
     Indication: HYPERTENSION
     Route: 048
  3. ANAPRIL/MAL/HCT [Concomitant]
     Indication: HYPERTENSION
     Dosage: 10/25MG DAILY
     Route: 048
  4. WELLCOL [Concomitant]
     Indication: BLOOD CHOLESTEROL INCREASED
     Route: 048
  5. CITALOPRAM HYDROBROMIDE [Concomitant]
     Indication: DEPRESSION
     Route: 048
  6. OMEPRAZOLE MAGNESIUM [Concomitant]
     Indication: GASTRIC DISORDER
     Route: 048

REACTIONS (2)
  - PRURITUS [None]
  - PSORIASIS [None]
